FAERS Safety Report 6068490-9 (Version None)
Quarter: 2009Q1

REPORT INFORMATION
  Report Type: 
  Country: None (occurrence: None)
  Receive Date: 20090206
  Receipt Date: 20090128
  Transmission Date: 20090719
  Serious: Yes (Hospitalization)
  Sender: FDA-Public Use
  Company Number: DE-PFIZER INC-2009161084

PATIENT

DRUGS (5)
  1. SOMATROPIN [Suspect]
     Indication: HYPOPITUITARISM
     Dosage: 0.4 MG, 1X/DAY
     Route: 058
     Dates: start: 20060207
  2. HYDROCORTISON [Concomitant]
     Dosage: 10 UNK, 1X/DAY
  3. BISOPROLOL FUMARATE AND HYDROCHLOROTHIAZIDE [Concomitant]
     Dosage: UNK, 1X/DAY
  4. TESTOVIRON [Concomitant]
     Dosage: 250 UNK, EVERY 16 DAYS
     Route: 030
  5. LEVOTHYROXINE [Concomitant]
     Dosage: 100 UNK, 1X/DAY

REACTIONS (1)
  - COLON CANCER STAGE IV [None]
